FAERS Safety Report 19376649 (Version 2)
Quarter: 2022Q1

REPORT INFORMATION
  Report Type: Spontaneous
  Country: IE (occurrence: IE)
  Receive Date: 20210604
  Receipt Date: 20220325
  Transmission Date: 20220424
  Serious: Yes (Other)
  Sender: FDA-Public Use
  Company Number: IE-SAMSUNG BIOEPIS-SB-2021-13733

PATIENT
  Age: 51 Year
  Sex: Female

DRUGS (4)
  1. INFLIXIMAB [Suspect]
     Active Substance: INFLIXIMAB
     Indication: Pyoderma gangrenosum
     Dosage: UNKNOWN
     Route: 065
  2. PREDNISOLONE [Suspect]
     Active Substance: PREDNISOLONE
     Indication: Pyoderma gangrenosum
     Route: 065
  3. PREDNISOLONE [Suspect]
     Active Substance: PREDNISOLONE
     Dosage: UNKNOWN, MINIMAL REDUCTION IN DOSAGE
     Route: 065
  4. CYCLOSPORINE [Suspect]
     Active Substance: CYCLOSPORINE
     Indication: Pyoderma gangrenosum
     Dosage: UNKNOWN
     Route: 065

REACTIONS (12)
  - Diabetes mellitus [Recovered/Resolved]
  - Pyoderma gangrenosum [Recovering/Resolving]
  - Renal injury [Unknown]
  - Nephropathy toxic [Unknown]
  - Herpes zoster [Unknown]
  - Urinary tract infection [Unknown]
  - Mobility decreased [Unknown]
  - Nausea [Unknown]
  - Weight decreased [Unknown]
  - Impaired quality of life [Unknown]
  - Drug ineffective for unapproved indication [Unknown]
  - Off label use [Unknown]
